FAERS Safety Report 5855512-0 (Version None)
Quarter: 2008Q3

REPORT INFORMATION
  Report Type: 
  Country: None (occurrence: None)
  Receive Date: 20080821
  Receipt Date: 20080811
  Transmission Date: 20090109
  Serious: Yes (Hospitalization)
  Sender: FDA-Public Use
  Company Number: 2008BI020719

PATIENT
  Age: 53 Year
  Sex: Female

DRUGS (1)
  1. AVONEX [Suspect]
     Indication: MULTIPLE SCLEROSIS
     Dosage: 30 UG;QW;IM
     Route: 030

REACTIONS (9)
  - CONDITION AGGRAVATED [None]
  - CYSTITIS [None]
  - DIPLOPIA [None]
  - EYE PRURITUS [None]
  - HERPES OPHTHALMIC [None]
  - KIDNEY INFECTION [None]
  - MULTIPLE SCLEROSIS [None]
  - OPTIC NEURITIS [None]
  - VERTIGO [None]
